FAERS Safety Report 16917874 (Version 2)
Quarter: 2019Q4

REPORT INFORMATION
  Report Type: Spontaneous
  Country: FR (occurrence: FR)
  Receive Date: 20191015
  Receipt Date: 20191227
  Transmission Date: 20200122
  Serious: Yes (Hospitalization)
  Sender: FDA-Public Use
  Company Number: FR-TEVA-2019-FR-1121255

PATIENT
  Age: 61 Year
  Sex: Male
  Weight: 84 kg

DRUGS (21)
  1. XARELTO 15 MG, FILMED TABLET [Concomitant]
     Route: 048
     Dates: end: 201902
  2. SULFAMETHOXAZOLE [Concomitant]
     Active Substance: SULFAMETHOXAZOLE
     Route: 048
  3. OXYNORMORO 10 MG, ORODISPERSIBLE TABLET [Concomitant]
     Route: 048
  4. AZITHROMYCINE ANHYDRE [Concomitant]
     Active Substance: AZITHROMYCIN ANHYDROUS
     Route: 048
  5. DIPROSONE 0.05 FOR CENT, CREAM [Concomitant]
     Route: 003
  6. VALACICLOVIR [Concomitant]
     Active Substance: VALACYCLOVIR HYDROCHLORIDE
     Route: 048
  7. MEROPENEM ANHYDRE [Suspect]
     Active Substance: MEROPENEM
     Indication: NOCARDIOSIS
     Dosage: 3 GRAM
     Route: 042
     Dates: start: 20190317, end: 20190319
  8. CORTANCYL [Concomitant]
     Active Substance: PREDNISONE
     Route: 048
  9. VANCOMYCINE [Suspect]
     Active Substance: VANCOMYCIN
     Indication: ANTIBIOTIC PROPHYLAXIS
     Dosage: 2 GRAM
     Route: 042
     Dates: start: 20190313, end: 20190316
  10. GLIVEC 100 MG, FILMED TABLET [Concomitant]
     Route: 048
  11. OXYCONTIN LP 20 MG, LONG-RELEASE FILM TABLET [Concomitant]
     Route: 048
  12. FOLINORAL 25 MG, CAPSULE [Concomitant]
     Route: 048
  13. LASILIX FAIBLE 20 MG, TABLET [Concomitant]
     Route: 048
  14. AMLODIPINE [Concomitant]
     Active Substance: AMLODIPINE BESYLATE
     Route: 048
  15. ALDACTONE 25 MG, SEISBLED SKINTED TABLET [Concomitant]
     Route: 048
  16. LANSOPRAZOLE. [Concomitant]
     Active Substance: LANSOPRAZOLE
     Route: 048
  17. TAZOCILLINE 4 G/500 MG, POUDRE POUR SOLUTION POUR PERFUSION [Suspect]
     Active Substance: PIPERACILLIN SODIUM\TAZOBACTAM SODIUM
     Indication: ANTIBIOTIC PROPHYLAXIS
     Dosage: 3 DOSAGE FORMS
     Route: 042
     Dates: start: 20190313, end: 20190316
  18. AMIKACINE [Suspect]
     Active Substance: AMIKACIN
     Indication: NOCARDIOSIS
     Dosage: 15 MG/KG
     Route: 042
     Dates: start: 20190317, end: 20190319
  19. CORDARONE [Concomitant]
     Active Substance: AMIODARONE HYDROCHLORIDE
     Route: 048
  20. TRIMETHOPRIME [Concomitant]
     Active Substance: TRIMETHOPRIM
     Route: 048
  21. CALCIUM (ACETATE DE) [Concomitant]
     Active Substance: CALCIUM ACETATE
     Route: 048

REACTIONS (2)
  - Rash macular [Recovering/Resolving]
  - Erythema [Recovering/Resolving]

NARRATIVE: CASE EVENT DATE: 20190319
